FAERS Safety Report 7102573 (Version 4)
Quarter: 2013Q3

REPORT INFORMATION
  Report Type: Spontaneous
  Country: None (occurrence: None)
  Receive Date: 20090824
  Receipt Date: 20130708
  Transmission Date: 20140515
  Serious: Yes (Hospitalization, Other)
  Sender: FDA-Public Use
  Company Number: AUR-APL-2009-00388

PATIENT
  Age: 26 Year
  Sex: Male

DRUGS (2)
  1. CITALOPRAM HYDROBROMIDE [Suspect]
     Indication: INTENTIONAL OVERDOSE
     Dosage: 800 MG, ORAL
     Route: 048
  2. CLOZAPINE [Suspect]
     Indication: INTENTIONAL OVERDOSE
     Dosage: 5 G (5X100 MG)

REACTIONS (18)
  - Intentional overdose [None]
  - Pyrexia [None]
  - Confusional state [None]
  - Respiratory rate increased [None]
  - Psychomotor hyperactivity [None]
  - Hypoxia [None]
  - Rales [None]
  - Anaemia [None]
  - Leukocytosis [None]
  - C-reactive protein increased [None]
  - Aspartate aminotransferase increased [None]
  - Sinus tachycardia [None]
  - Cardiotoxicity [None]
  - Pneumonia aspiration [None]
  - Pulmonary oedema [None]
  - Blood pressure systolic increased [None]
  - Toxicity to various agents [None]
  - Gastrointestinal hypomotility [None]
